FAERS Safety Report 6011938-6 (Version None)
Quarter: 2008Q4

REPORT INFORMATION
  Report Type: 
  Country: None (occurrence: None)
  Receive Date: 20081218
  Receipt Date: 20081007
  Transmission Date: 20090506
  Serious: No
  Sender: FDA-Public Use
  Company Number: US-ASTRAZENECA-2008UW21960

PATIENT
  Age: 79 Year
  Sex: Female
  Weight: 70.3 kg

DRUGS (3)
  1. CRESTOR [Suspect]
     Indication: BLOOD CHOLESTEROL INCREASED
     Route: 048
  2. CARDITIS [Concomitant]
  3. LISINOPRIL [Concomitant]

REACTIONS (2)
  - EYE IRRITATION [None]
  - VISION BLURRED [None]
